FAERS Safety Report 11524000 (Version 1)
Quarter: 2015Q3

REPORT INFORMATION
  Report Type: Spontaneous
  Country: US (occurrence: US)
  Receive Date: 20150903
  Receipt Date: 20150903
  Transmission Date: 20151125
  Serious: No
  Sender: FDA-Public Use
  Company Number: US-ELI_LILLY_AND_COMPANY-US201304006695

PATIENT
  Sex: Female

DRUGS (1)
  1. CYMBALTA [Suspect]
     Active Substance: DULOXETINE HYDROCHLORIDE
     Dosage: UNK, UNKNOWN

REACTIONS (7)
  - Eating disorder [Unknown]
  - Drug ineffective [Unknown]
  - Nausea [Unknown]
  - Pain in extremity [Unknown]
  - Abdominal pain [Unknown]
  - Anxiety [Unknown]
  - Mood altered [Unknown]
